FAERS Safety Report 5008596-6 (Version None)
Quarter: 2006Q2

REPORT INFORMATION
  Report Type: 
  Country: None (occurrence: None)
  Receive Date: 20060523
  Receipt Date: 20060512
  Transmission Date: 20061013
  Serious: Yes (Other)
  Sender: FDA-Public Use
  Company Number: US-ROCHE-447824

PATIENT

DRUGS (2)
  1. GANCICLOVIR SODIUM [Suspect]
     Indication: DRUG USE FOR UNKNOWN INDICATION
     Route: 042
  2. GANCICLOVIR SODIUM [Suspect]
     Route: 042

REACTIONS (3)
  - AGITATION [None]
  - CONFUSIONAL STATE [None]
  - DELIRIUM [None]
